FAERS Safety Report 10282378 (Version 3)
Quarter: 2014Q3

REPORT INFORMATION
  Report Type: Spontaneous
  Country: DE (occurrence: DE)
  Receive Date: 20140707
  Receipt Date: 20140809
  Transmission Date: 20150326
  Serious: Yes (Death, Hospitalization)
  Sender: FDA-Public Use
  Company Number: DE-SA-2014SA044027

PATIENT
  Sex: Female

DRUGS (2)
  1. OPIPRAMOL [Concomitant]
     Active Substance: OPIPRAMOL
     Indication: ADJUSTMENT DISORDER
     Dates: start: 20111202
  2. AUBAGIO [Suspect]
     Active Substance: TERIFLUNOMIDE
     Indication: MULTIPLE SCLEROSIS
     Route: 048
     Dates: start: 20131212, end: 20140403

REACTIONS (6)
  - Hepatic enzyme increased [Not Recovered/Not Resolved]
  - Ascites [Not Recovered/Not Resolved]
  - Cholangiocarcinoma [Fatal]
  - Jaundice [Not Recovered/Not Resolved]
  - Anaemia of malignant disease [Not Recovered/Not Resolved]
  - Metastases to liver [Not Recovered/Not Resolved]

NARRATIVE: CASE EVENT DATE: 2014
